FAERS Safety Report 9844248 (Version 2)
Quarter: 2014Q4

REPORT INFORMATION
  Report Type: Spontaneous
  Country: US (occurrence: US)
  Receive Date: 20140127
  Receipt Date: 20141023
  Transmission Date: 20150529
  Serious: No
  Sender: FDA-Public Use
  Company Number: US-BIOGENIDEC-2014BI007950

PATIENT
  Sex: Female

DRUGS (1)
  1. AVONEX [Suspect]
     Active Substance: INTERFERON BETA-1A
     Indication: MULTIPLE SCLEROSIS
     Route: 030
     Dates: start: 19970701

REACTIONS (9)
  - Mobility decreased [Unknown]
  - General symptom [Not Recovered/Not Resolved]
  - Sluggishness [Not Recovered/Not Resolved]
  - Memory impairment [Unknown]
  - Fear [Unknown]
  - Gait disturbance [Unknown]
  - Anxiety [Unknown]
  - Muscular weakness [Unknown]
  - Cognitive disorder [Unknown]
